FAERS Safety Report 8877535 (Version 1)
Quarter: 2012Q4

REPORT INFORMATION
  Report Type: Spontaneous
  Country: US (occurrence: None)
  Receive Date: 20121026
  Receipt Date: 20121026
  Transmission Date: 20130627
  Serious: Yes (Other)
  Sender: FDA-Public Use
  Company Number: ADR-2012-01939

PATIENT
  Age: 27 Year
  Sex: Male

DRUGS (1)
  1. LIORESAL [Suspect]
     Indication: SPASTICITY
     Dosage: 1150 MCG/DAY

REACTIONS (3)
  - No therapeutic response [None]
  - Cerebral haemorrhage [None]
  - General physical health deterioration [None]
